FAERS Safety Report 14010836 (Version 1)
Quarter: 2017Q3

REPORT INFORMATION
  Report Type: Spontaneous
  Country: US (occurrence: None)
  Receive Date: 20170925
  Receipt Date: 20170925
  Transmission Date: 20171128
  Serious: No
  Sender: FDA-Public Use
  Company Number: None

PATIENT
  Age: 61 Year
  Sex: Female

DRUGS (1)
  1. PREZCOBIX [Suspect]
     Active Substance: COBICISTAT\DARUNAVIR ETHANOLATE

REACTIONS (4)
  - Diarrhoea [None]
  - Faeces pale [None]
  - Abdominal pain upper [None]
  - Pollakiuria [None]

NARRATIVE: CASE EVENT DATE: 20170925
